FAERS Safety Report 4311164-2 (Version None)
Quarter: 2004Q1

REPORT INFORMATION
  Report Type: 
  Country: None (occurrence: None)
  Receive Date: 20040302
  Receipt Date: 20040227
  Transmission Date: 20041129
  Serious: Yes (Other)
  Sender: FDA-Public Use
  Company Number: 8005028

PATIENT
  Age: 3 Year
  Sex: Female
  Weight: 14.09 kg

DRUGS (3)
  1. KEPPRA [Suspect]
     Indication: EPILEPSY
     Dosage: 500 MG 2/D PO
     Route: 048
     Dates: start: 20040112, end: 20040118
  2. KEPPRA [Suspect]
     Indication: EPILEPSY
     Dosage: 50 MG 2/D PO
     Route: 048
     Dates: start: 20040119
  3. TEGRETOL [Concomitant]

REACTIONS (2)
  - MEDICATION ERROR [None]
  - SOMNOLENCE [None]
